FAERS Safety Report 14681103 (Version 1)
Quarter: 2018Q1

REPORT INFORMATION
  Report Type: Spontaneous
  Country: US (occurrence: US)
  Receive Date: 20180325
  Receipt Date: 20180325
  Transmission Date: 20180509
  Serious: No
  Sender: FDA-Public Use
  Company Number: None

PATIENT
  Age: 64 Year
  Sex: Female

DRUGS (1)
  1. BOTOX [Suspect]
     Active Substance: ONABOTULINUMTOXINA
     Indication: MIGRAINE
     Dosage: 155 UNITS EVERY 12 WEEKS INTRAMUSCULAR
     Route: 030
     Dates: start: 20180120, end: 20180124

REACTIONS (6)
  - Burning sensation [None]
  - Lacrimation increased [None]
  - Muscular weakness [None]
  - Eye swelling [None]
  - Pruritus [None]
  - Rash [None]

NARRATIVE: CASE EVENT DATE: 20180120
